FAERS Safety Report 8657395 (Version 6)
Quarter: 2013Q3

REPORT INFORMATION
  Report Type: Report from Study
  Country: JP (occurrence: JP)
  Receive Date: 20120710
  Receipt Date: 20130722
  Transmission Date: 20140515
  Serious: Yes (Hospitalization)
  Sender: FDA-Public Use
  Company Number: JP-MSD-2012SP033843

PATIENT
  Age: 54 Year
  Sex: Male
  Weight: 54 kg

DRUGS (15)
  1. PEGINTRON [Suspect]
     Indication: CHRONIC HEPATITIS C
     Dosage: 1.5 MICROGRAM PER KILOGRAM, QW, DAILY DOSE UNKNOWN
     Route: 058
     Dates: start: 20120412, end: 20120418
  2. PEGINTRON [Suspect]
     Dosage: 0.7 MICROGRAM PER KILOGRAM, QW, DAILY DOSE UNKNOWN
     Route: 058
     Dates: start: 20120419, end: 20120425
  3. PEGINTRON [Suspect]
     Dosage: 1.5 MICROGRAM PER KILOGRAM, QW, DAILY DOSE UNKNOWN
     Route: 058
     Dates: start: 20120426, end: 20120426
  4. PEGINTRON [Suspect]
     Dosage: 0.7 MICROGRAM PER KILOGRAM, QW, DAILY DOSE UNKNOWN
     Route: 058
     Dates: start: 20120531, end: 20120531
  5. REBETOL [Suspect]
     Indication: CHRONIC HEPATITIS C
     Dosage: 400 MG, QD
     Route: 048
     Dates: start: 20120412, end: 20120425
  6. REBETOL [Suspect]
     Dosage: 200 MG, QD
     Route: 048
     Dates: start: 20120426, end: 20120531
  7. TELAVIC [Suspect]
     Indication: CHRONIC HEPATITIS C
     Dosage: 2250 MG, QD
     Route: 048
     Dates: start: 20120412, end: 20120426
  8. TELAVIC [Suspect]
     Dosage: 1500 MG, QD
     Route: 048
     Dates: start: 20120427, end: 20120510
  9. TELAVIC [Suspect]
     Dosage: 1500 MG, QD
     Route: 048
     Dates: start: 20120511, end: 20120531
  10. TELAVIC [Suspect]
     Dosage: DAILY DOSE UNKNOWN
     Route: 048
     Dates: start: 20130214
  11. ALMETA [Concomitant]
     Indication: SEBORRHOEIC DERMATITIS
     Dosage: DAILY DOSE UNKNOWN, PRN
     Route: 061
     Dates: start: 20120419
  12. ALMETA [Concomitant]
     Indication: ECZEMA
  13. BETNOVAL G [Concomitant]
     Indication: SEBORRHOEIC DERMATITIS
     Dosage: DAILY DOSE UNKNOWN, PRN
     Route: 061
     Dates: start: 20120419
  14. BETNOVAL G [Concomitant]
     Indication: ECZEMA
  15. BFLUID [Concomitant]
     Indication: DECREASED APPETITE
     Dosage: 500 ML, QD
     Route: 042
     Dates: start: 20120421, end: 20120507

REACTIONS (2)
  - Anaemia [Not Recovered/Not Resolved]
  - Haemoglobin decreased [Not Recovered/Not Resolved]
